FAERS Safety Report 19944581 (Version 1)
Quarter: 2021Q4

REPORT INFORMATION
  Report Type: 
  Country: US (occurrence: US)
  Receive Date: 20211011
  Receipt Date: 20211011
  Transmission Date: 20220303
  Serious: No
  Sender: FDA-Public Use
  Company Number: US-C B FLEET CO INC-202106-US-002027

PATIENT
  Sex: Male

DRUGS (1)
  1. MONISTAT 1 COMBINATION PACK [Suspect]
     Active Substance: MICONAZOLE NITRATE
     Indication: Accidental exposure to product
     Dosage: EXPOSURE DURING INTERCOURSE

REACTIONS (2)
  - Genital burning sensation [Not Recovered/Not Resolved]
  - Accidental exposure to product [None]

NARRATIVE: CASE EVENT DATE: 20210607
